FAERS Safety Report 17843919 (Version 1)
Quarter: 2020Q2

REPORT INFORMATION
  Report Type: Report from Study
  Country: NL (occurrence: NL)
  Receive Date: 20200601
  Receipt Date: 20200601
  Transmission Date: 20200714
  Serious: Yes (Congenital Anomaly)
  Sender: FDA-Public Use
  Company Number: NL-AUROBINDO-AUR-APL-2020-026730

PATIENT

DRUGS (1)
  1. CLOZAPINE. [Suspect]
     Active Substance: CLOZAPINE
     Indication: PRODUCT USED FOR UNKNOWN INDICATION
     Dosage: UNK
     Route: 064

REACTIONS (5)
  - Iron deficiency [Unknown]
  - Sickle cell trait [Unknown]
  - Serum ferritin decreased [Unknown]
  - Viral infection [Unknown]
  - Foetal exposure during pregnancy [Unknown]
